FAERS Safety Report 5201309-4 (Version None)
Quarter: 2007Q1

REPORT INFORMATION
  Report Type: 
  Country: None (occurrence: None)
  Receive Date: 20070108
  Receipt Date: 20061227
  Transmission Date: 20070707
  Serious: Yes (Hospitalization, Other)
  Sender: FDA-Public Use
  Company Number: US-SHR-US-2006-022990

PATIENT
  Age: 42 Year
  Sex: Female
  Weight: 144.22 kg

DRUGS (6)
  1. BETASERON [Suspect]
     Indication: SECONDARY PROGRESSIVE MULTIPLE SCLEROSIS
     Dosage: 12 MIU, EVERY 2D
     Route: 058
     Dates: start: 20020201
  2. OXYCODONE HCL [Concomitant]
     Indication: PAIN
  3. DITROPAN XL [Concomitant]
     Dosage: 10 MG, UNK
  4. PAXIL [Concomitant]
     Dosage: 40 MG, UNK
  5. AMBIEN [Concomitant]
     Dosage: 10 MG, UNK
  6. DIOVAN [Concomitant]

REACTIONS (10)
  - HERNIA REPAIR [None]
  - IMPAIRED HEALING [None]
  - INFLUENZA LIKE ILLNESS [None]
  - INJECTION SITE PRURITUS [None]
  - INJECTION SITE URTICARIA [None]
  - NEUTRALISING ANTIBODIES [None]
  - POSTOPERATIVE ADHESION [None]
  - POSTOPERATIVE WOUND INFECTION [None]
  - UTERINE LEIOMYOMA [None]
  - VAGINAL HAEMORRHAGE [None]
